FAERS Safety Report 8313735-5 (Version None)
Quarter: 2012Q2

REPORT INFORMATION
  Report Type: 
  Country: None (occurrence: None)
  Receive Date: 20120426
  Receipt Date: 20110808
  Transmission Date: 20120825
  Serious: Yes (Other)
  Sender: FDA-Public Use
  Company Number: US-TEVA-US018175

PATIENT
  Sex: Male
  Weight: 91 kg

DRUGS (4)
  1. ZOLOFT [Suspect]
     Indication: DEPRESSION
     Dosage: 150 MILLIGRAM;
     Route: 048
  2. ABILIFY [Suspect]
     Dosage: 10 MILLIGRAM;
     Route: 048
     Dates: end: 20060101
  3. ABILIFY [Suspect]
     Dosage: 10 MILLIGRAM;
     Route: 048
     Dates: start: 20060101
  4. PROVIGIL [Suspect]
     Indication: NARCOLEPSY
     Dosage: 200 MILLIGRAM;
     Route: 048
     Dates: start: 20050820

REACTIONS (9)
  - DEPRESSION [None]
  - SUICIDAL IDEATION [None]
  - FEELING ABNORMAL [None]
  - FEAR [None]
  - DRUG INTERACTION [None]
  - AGITATION [None]
  - TIC [None]
  - NERVOUSNESS [None]
  - INSOMNIA [None]
